FAERS Safety Report 22267058 (Version 1)
Quarter: 2023Q2

REPORT INFORMATION
  Report Type: Spontaneous
  Country: GB (occurrence: GB)
  Receive Date: 20230428
  Receipt Date: 20230428
  Transmission Date: 20230721
  Serious: Yes (Hospitalization)
  Sender: FDA-Public Use
  Company Number: GB-ROCHE-2083642

PATIENT
  Age: 65 Year
  Sex: Female

DRUGS (39)
  1. DOCETAXEL [Suspect]
     Active Substance: DOCETAXEL
     Indication: HER2 positive breast cancer
     Dosage: 108 MG
     Route: 042
     Dates: start: 20170620, end: 20170801
  2. DOCETAXEL [Suspect]
     Active Substance: DOCETAXEL
     Indication: Breast cancer metastatic
     Dosage: 88 MG
     Route: 042
     Dates: start: 20170822, end: 20171003
  3. PERTUZUMAB [Suspect]
     Active Substance: PERTUZUMAB
     Indication: HER2 positive breast cancer
     Dosage: 420 MG
     Route: 042
     Dates: start: 20170711, end: 20180502
  4. PERTUZUMAB [Suspect]
     Active Substance: PERTUZUMAB
     Route: 042
     Dates: start: 20170619, end: 20170619
  5. PERTUZUMAB [Suspect]
     Active Substance: PERTUZUMAB
     Dosage: 840 MG
     Route: 042
     Dates: start: 20180618, end: 20180618
  6. PERTUZUMAB [Suspect]
     Active Substance: PERTUZUMAB
     Dosage: 420 MG
     Route: 042
     Dates: start: 20180709, end: 20181024
  7. TRASTUZUMAB [Suspect]
     Active Substance: TRASTUZUMAB
     Indication: HER2 positive breast cancer
     Dosage: 315 MG
     Route: 042
     Dates: start: 20170711, end: 20170801
  8. TRASTUZUMAB [Suspect]
     Active Substance: TRASTUZUMAB
     Dosage: 283.5 MG
     Route: 042
     Dates: start: 20180709, end: 20180820
  9. TRASTUZUMAB [Suspect]
     Active Substance: TRASTUZUMAB
     Dosage: 283.5 MG
     Route: 042
     Dates: start: 20171003, end: 20180502
  10. TRASTUZUMAB [Suspect]
     Active Substance: TRASTUZUMAB
     Dosage: 388.5 MG
     Route: 042
     Dates: start: 20180618, end: 20180618
  11. TRASTUZUMAB [Suspect]
     Active Substance: TRASTUZUMAB
     Dosage: 420 MG
     Route: 042
     Dates: start: 20170619, end: 20170619
  12. TRASTUZUMAB [Suspect]
     Active Substance: TRASTUZUMAB
     Dosage: 294 MG
     Route: 042
     Dates: start: 20170822, end: 20170916
  13. TRASTUZUMAB [Suspect]
     Active Substance: TRASTUZUMAB
     Route: 042
     Dates: start: 20180910, end: 20181024
  14. ADO-TRASTUZUMAB EMTANSINE [Suspect]
     Active Substance: ADO-TRASTUZUMAB EMTANSINE
     Indication: HER2 positive breast cancer
     Dosage: 200 MG
     Route: 042
     Dates: start: 20181122, end: 20201217
  15. ADO-TRASTUZUMAB EMTANSINE [Suspect]
     Active Substance: ADO-TRASTUZUMAB EMTANSINE
     Indication: Breast cancer metastatic
     Route: 042
     Dates: start: 20200514, end: 20201126
  16. ADO-TRASTUZUMAB EMTANSINE [Suspect]
     Active Substance: ADO-TRASTUZUMAB EMTANSINE
     Route: 042
     Dates: start: 20200225, end: 20200225
  17. ADO-TRASTUZUMAB EMTANSINE [Suspect]
     Active Substance: ADO-TRASTUZUMAB EMTANSINE
     Route: 042
     Dates: start: 20201217, end: 20210827
  18. CAPECITABINE [Suspect]
     Active Substance: CAPECITABINE
     Indication: Breast cancer metastatic
     Dosage: DAILY FOR 14 DAYS, 1 WEEK OFF
     Route: 048
     Dates: end: 20211208
  19. NERATINIB [Suspect]
     Active Substance: NERATINIB
     Indication: Breast cancer metastatic
     Dosage: 240 MILLIGRAM DAILY;
     Route: 048
     Dates: start: 20211013, end: 20211220
  20. DENOSUMAB [Concomitant]
     Active Substance: DENOSUMAB
     Indication: Product used for unknown indication
     Route: 058
  21. DEXAMETHASONE [Concomitant]
     Active Substance: DEXAMETHASONE
     Indication: Product used for unknown indication
     Dosage: PRN (AS NEEDED), 8 MG
     Route: 048
     Dates: start: 20170620, end: 20171003
  22. DEXAMETHASONE [Concomitant]
     Active Substance: DEXAMETHASONE
     Dosage: 4 MILLIGRAM DAILY;
     Route: 048
     Dates: start: 20210103, end: 20210103
  23. DEXAMETHASONE [Concomitant]
     Active Substance: DEXAMETHASONE
     Dosage: 8 MILLIGRAM DAILY; PRN (AS NEEDED)
     Route: 048
     Dates: start: 20201223, end: 20210102
  24. LANSOPRAZOLE [Concomitant]
     Active Substance: LANSOPRAZOLE
     Indication: Product used for unknown indication
     Dosage: PRN (AS NEEDED), 30 MG
     Route: 048
     Dates: start: 20170705
  25. LANSOPRAZOLE [Concomitant]
     Active Substance: LANSOPRAZOLE
     Dosage: 840 MILLIGRAM
     Route: 042
     Dates: start: 20180618, end: 20180618
  26. LOPERAMIDE [Concomitant]
     Active Substance: LOPERAMIDE
     Indication: Product used for unknown indication
     Dosage: PRN (AS NEEDED), 16 MG
     Route: 048
     Dates: start: 20170705, end: 20171003
  27. METOCLOPRAMIDE [Concomitant]
     Active Substance: METOCLOPRAMIDE
     Indication: Product used for unknown indication
     Dosage: PRN (AS NEEDED), 10 MG
     Route: 048
     Dates: start: 20170620
  28. ONDANSETRON [Concomitant]
     Active Substance: ONDANSETRON
     Indication: Product used for unknown indication
     Dosage: PRN (AS NEEDED), 8 MG
     Route: 048
     Dates: start: 20170620
  29. MORPHINE SULFATE [Concomitant]
     Active Substance: MORPHINE SULFATE
     Indication: Product used for unknown indication
     Dosage: PRN (AS NEEDED)
     Route: 048
  30. ACETAMINOPHEN [Concomitant]
     Active Substance: ACETAMINOPHEN
     Indication: Product used for unknown indication
     Dosage: PRN (AS NEEDED)
     Route: 048
  31. SIMVASTATIN [Concomitant]
     Active Substance: SIMVASTATIN
     Indication: Product used for unknown indication
  32. MORPHINE SULFATE [Concomitant]
     Active Substance: MORPHINE SULFATE
     Indication: Product used for unknown indication
     Dosage: 10 MG
     Route: 048
  33. COTRIMOXAZOLE [Concomitant]
     Active Substance: SULFAMETHOXAZOLE\TRIMETHOPRIM
     Indication: Product used for unknown indication
     Dosage: 480 MILLIGRAM DAILY;
     Route: 048
     Dates: start: 20170620
  34. FILGRASTIM [Concomitant]
     Active Substance: FILGRASTIM
     Indication: Product used for unknown indication
     Route: 058
     Dates: start: 20170620
  35. HYPROMELLOSES [Concomitant]
     Active Substance: HYPROMELLOSES
     Indication: Product used for unknown indication
     Route: 065
     Dates: start: 20190410, end: 20190903
  36. LEVETIRACETAM [Concomitant]
     Active Substance: LEVETIRACETAM
     Indication: Product used for unknown indication
     Route: 048
     Dates: start: 20201223, end: 20211228
  37. LEVETIRACETAM [Concomitant]
     Active Substance: LEVETIRACETAM
     Route: 048
     Dates: start: 20211228
  38. MAGNESIUM [Concomitant]
     Active Substance: MAGNESIUM
     Indication: Product used for unknown indication
  39. ERGOCALCIFEROL [Concomitant]
     Active Substance: ERGOCALCIFEROL
     Indication: Product used for unknown indication

REACTIONS (10)
  - Diarrhoea [Recovered/Resolved]
  - Partial seizures [Recovered/Resolved with Sequelae]
  - Ejection fraction decreased [Recovered/Resolved]
  - Diarrhoea [Recovered/Resolved]
  - Lacrimation increased [Recovered/Resolved]
  - Cough [Recovered/Resolved]
  - Abdominal distension [Recovered/Resolved]
  - Off label use [Unknown]
  - Diarrhoea [Recovered/Resolved]
  - Diarrhoea [Recovered/Resolved]

NARRATIVE: CASE EVENT DATE: 20170801
